FAERS Safety Report 9668801 (Version 1)
Quarter: 2013Q4

REPORT INFORMATION
  Report Type: Other
  Country: US (occurrence: US)
  Receive Date: 20131105
  Receipt Date: 20131105
  Transmission Date: 20140711
  Serious: Yes (Life-Threatening, Hospitalization)
  Sender: FDA-Public Use
  Company Number: US-NAPPMUNDI-DEU-2013-0012752

PATIENT
  Age: 66 Year
  Sex: Female

DRUGS (2)
  1. HYDROMORPHONE HCL INJECTABLE (SIMILAR TO 19-034) [Suspect]
     Indication: PRODUCT USED FOR UNKNOWN INDICATION
     Dosage: 60 MG, SINGLE
     Route: 058
  2. BUPIVACAINE [Suspect]
     Indication: PRODUCT USED FOR UNKNOWN INDICATION
     Dosage: 420 MG, SINGLE
     Route: 058

REACTIONS (9)
  - Respiratory rate decreased [Recovered/Resolved]
  - Haemodynamic instability [Recovered/Resolved]
  - Incorrect route of drug administration [Unknown]
  - Cardiotoxicity [Recovered/Resolved]
  - Electrocardiogram QRS complex shortened [Recovered/Resolved]
  - Grand mal convulsion [Recovered/Resolved]
  - Mental impairment [Recovered/Resolved]
  - Hypotension [Recovered/Resolved]
  - Depressed level of consciousness [Recovered/Resolved]
